FAERS Safety Report 20734188 (Version 2)
Quarter: 2022Q2

REPORT INFORMATION
  Report Type: Spontaneous
  Country: US (occurrence: US)
  Receive Date: 20220421
  Receipt Date: 20220428
  Transmission Date: 20220721
  Serious: Yes (Hospitalization, Other)
  Sender: FDA-Public Use
  Company Number: US-UNITED THERAPEUTICS-UNT-2022-005845

PATIENT
  Age: 38 Year
  Sex: Female
  Weight: 63.492 kg

DRUGS (15)
  1. REMODULIN [Suspect]
     Active Substance: TREPROSTINIL
     Indication: Pulmonary arterial hypertension
     Dosage: UNK, CONTINUING
     Route: 041
     Dates: start: 20171122
  2. REMODULIN [Suspect]
     Active Substance: TREPROSTINIL
     Dosage: 0.060 ?G/KG (AT A RATE OF 40 ML/DAY), CONTINUING
     Route: 041
  3. REMODULIN [Suspect]
     Active Substance: TREPROSTINIL
     Dosage: UNK (RATE: 40 M/HR), CONTINUING
     Route: 041
     Dates: start: 202203
  4. REMODULIN [Suspect]
     Active Substance: TREPROSTINIL
     Dosage: 0.045 ?G/KG, CONTINUING
     Route: 041
     Dates: end: 20220412
  5. ORENITRAM [Suspect]
     Active Substance: TREPROSTINIL
     Indication: Pulmonary arterial hypertension
     Dosage: 0.25 MG, TID
     Route: 048
     Dates: start: 20220317
  6. ORENITRAM [Suspect]
     Active Substance: TREPROSTINIL
     Dosage: 2 MG, TID
     Route: 048
  7. ORENITRAM [Suspect]
     Active Substance: TREPROSTINIL
     Dosage: 10 MG, TID
     Route: 048
     Dates: start: 202204, end: 202204
  8. ORENITRAM [Suspect]
     Active Substance: TREPROSTINIL
     Dosage: 7.5 MG, TID
     Route: 048
     Dates: start: 202204
  9. ORENITRAM [Suspect]
     Active Substance: TREPROSTINIL
     Dosage: 8.5 MG, TID
     Route: 048
     Dates: start: 20220418
  10. ORENITRAM [Suspect]
     Active Substance: TREPROSTINIL
     Indication: Pulmonary arterial hypertension
     Dosage: UNK
     Route: 048
  11. ORENITRAM [Suspect]
     Active Substance: TREPROSTINIL
     Indication: Pulmonary arterial hypertension
     Dosage: UNK
     Route: 048
  12. ORENITRAM [Suspect]
     Active Substance: TREPROSTINIL
     Indication: Pulmonary arterial hypertension
     Dosage: UNK
     Route: 048
  13. ORENITRAM [Suspect]
     Active Substance: TREPROSTINIL
     Indication: Pulmonary arterial hypertension
     Dosage: UNK
     Route: 048
  14. VANCOMYCIN [Suspect]
     Active Substance: VANCOMYCIN
     Indication: Product used for unknown indication
     Dosage: UNK
     Route: 042
  15. LETAIRIS [Concomitant]
     Active Substance: AMBRISENTAN
     Indication: Product used for unknown indication
     Dosage: UNK
     Route: 065

REACTIONS (35)
  - Complication associated with device [Not Recovered/Not Resolved]
  - Vascular device infection [Unknown]
  - Injection site discharge [Unknown]
  - Injection site haemorrhage [Unknown]
  - Injection site pain [Unknown]
  - Injection site swelling [Unknown]
  - Mobility decreased [Unknown]
  - Injection site irritation [Unknown]
  - Device issue [Unknown]
  - Swelling [Unknown]
  - Skin discolouration [Unknown]
  - Pain [Unknown]
  - Back pain [Unknown]
  - Neck pain [Unknown]
  - Dyspnoea [Unknown]
  - Injection site induration [Unknown]
  - Chest pain [Unknown]
  - Therapy non-responder [Unknown]
  - Discomfort [Unknown]
  - Anxiety [Unknown]
  - Drug dose titration not performed [Unknown]
  - Dyspnoea exertional [Unknown]
  - Dizziness [Unknown]
  - Abdominal pain upper [Unknown]
  - Headache [Recovering/Resolving]
  - Nausea [Recovering/Resolving]
  - Feeling hot [Unknown]
  - Weight decreased [Unknown]
  - Feeling abnormal [Recovering/Resolving]
  - Loss of personal independence in daily activities [Unknown]
  - Heart rate increased [Unknown]
  - Pruritus [Unknown]
  - Palpitations [Unknown]
  - Drug intolerance [Recovering/Resolving]
  - Oxygen saturation decreased [Recovering/Resolving]

NARRATIVE: CASE EVENT DATE: 20220301
